FAERS Safety Report 19811134 (Version 1)
Quarter: 2021Q3

REPORT INFORMATION
  Report Type: Spontaneous
  Country: US (occurrence: US)
  Receive Date: 20210909
  Receipt Date: 20210909
  Transmission Date: 20211014
  Serious: Yes (Hospitalization, Other)
  Sender: FDA-Public Use
  Company Number: US-GLAXOSMITHKLINE-USCH2021GSK058333

PATIENT
  Age: 5 Year
  Sex: Female

DRUGS (3)
  1. IBUPROFEN. [Suspect]
     Active Substance: IBUPROFEN
     Indication: PYREXIA
     Dosage: UNK
  2. AMOXYCILLIN [Suspect]
     Active Substance: AMOXICILLIN
     Indication: PHARYNGITIS STREPTOCOCCAL
     Dosage: UNK
  3. LEVOTHYROXINE. [Concomitant]
     Active Substance: LEVOTHYROXINE
     Indication: HYPOTHYROIDISM
     Dosage: UNK

REACTIONS (14)
  - Renal tubular necrosis [Unknown]
  - Nephritis [Unknown]
  - Beta haemolytic streptococcal infection [Unknown]
  - Pneumonia [Unknown]
  - Pyrexia [Unknown]
  - Acute kidney injury [Recovered/Resolved]
  - Hyperkalaemia [Recovered/Resolved]
  - Hypophagia [Unknown]
  - Proteinuria [Unknown]
  - Tubulointerstitial nephritis [Unknown]
  - Glomerulonephritis acute [Unknown]
  - Chest pain [Unknown]
  - Vomiting [Unknown]
  - Pyelonephritis acute [Unknown]
